FAERS Safety Report 24230860 (Version 1)
Quarter: 2024Q3

REPORT INFORMATION
  Report Type: Spontaneous
  Country: US (occurrence: US)
  Receive Date: 20240821
  Receipt Date: 20240821
  Transmission Date: 20241017
  Serious: No
  Sender: ELI LILLY AND CO
  Company Number: US-ELI_LILLY_AND_COMPANY-US202408006880

PATIENT
  Age: 69 Year
  Sex: Female

DRUGS (4)
  1. HUMULIN N [Suspect]
     Active Substance: INSULIN HUMAN
     Indication: Product used for unknown indication
     Dosage: 16 U, BID
     Route: 065
     Dates: start: 2019
  2. HUMULIN N [Suspect]
     Active Substance: INSULIN HUMAN
     Dosage: 16 U, BID
     Route: 065
  3. HUMULIN N [Suspect]
     Active Substance: INSULIN HUMAN
     Dosage: 16 U, BID
     Route: 065
  4. GLIPIZIDE [Concomitant]
     Active Substance: GLIPIZIDE
     Indication: Type 2 diabetes mellitus
     Dosage: 10 MG, BID

REACTIONS (7)
  - Pancreatic cyst [Unknown]
  - Musculoskeletal chest pain [Unknown]
  - Blood glucose increased [Unknown]
  - Renal cyst [Unknown]
  - Stress [Unknown]
  - Accidental underdose [Unknown]
  - Product dose omission issue [Unknown]

NARRATIVE: CASE EVENT DATE: 20230101
